FAERS Safety Report 4649100-1 (Version None)
Quarter: 2005Q2

REPORT INFORMATION
  Report Type: 
  Country: None (occurrence: None)
  Receive Date: 20050427
  Receipt Date: 20050413
  Transmission Date: 20051028
  Serious: Yes (Other)
  Sender: FDA-Public Use
  Company Number: USA050495588

PATIENT
  Age: 61 Year
  Sex: Male
  Weight: 136 kg

DRUGS (7)
  1. CYMBALTA [Suspect]
     Indication: DEPRESSION
     Dosage: 60 MG DAY
     Dates: start: 20041201, end: 20050301
  2. CELEXA [Concomitant]
  3. ELAVIL [Concomitant]
  4. RESTORIL [Concomitant]
  5. PRILOSEC (OMEPRAZOLE RATIOPHARM) [Concomitant]
  6. GLUCOVANCE [Concomitant]
  7. OXYCONTIN [Concomitant]

REACTIONS (3)
  - BLISTER [None]
  - DRUG HYPERSENSITIVITY [None]
  - DRY MOUTH [None]
